FAERS Safety Report 23567493 (Version 1)
Quarter: 2024Q1

REPORT INFORMATION
  Report Type: Spontaneous
  Country: US (occurrence: US)
  Receive Date: 20240226
  Receipt Date: 20240226
  Transmission Date: 20240410
  Serious: Yes (Hospitalization, Other)
  Sender: FDA-Public Use
  Company Number: US-ELI_LILLY_AND_COMPANY-US202402010805

PATIENT
  Age: 52 Year
  Sex: Female

DRUGS (3)
  1. ABEMACICLIB [Suspect]
     Active Substance: ABEMACICLIB
     Indication: Breast cancer
     Dosage: UNK, UNKNOWN
     Route: 065
  2. LETROZOLE [Suspect]
     Active Substance: LETROZOLE
     Indication: Breast cancer
     Dosage: UNK, UNKNOWN
     Route: 065
  3. DULOXETINE HYDROCHLORIDE [Concomitant]
     Active Substance: DULOXETINE HYDROCHLORIDE
     Indication: Product used for unknown indication
     Dosage: UNK, UNKNOWN
     Route: 065

REACTIONS (11)
  - Drug-induced liver injury [Recovered/Resolved]
  - Acute on chronic liver failure [Recovered/Resolved]
  - Non-alcoholic steatohepatitis [Recovered/Resolved]
  - Hepatic encephalopathy [Recovered/Resolved]
  - Coagulopathy [Unknown]
  - Acute kidney injury [Unknown]
  - Cholestatic liver injury [Recovered/Resolved]
  - Hepatic steatosis [Recovered/Resolved]
  - Ascites [Unknown]
  - Hepatic cirrhosis [Recovered/Resolved]
  - Thrombocytopenia [Unknown]
